FAERS Safety Report 19451783 (Version 4)
Quarter: 2022Q1

REPORT INFORMATION
  Report Type: Other
  Country: JP (occurrence: JP)
  Receive Date: 20210623
  Receipt Date: 20220103
  Transmission Date: 20220423
  Serious: Yes (Death, Hospitalization, Other)
  Sender: FDA-Public Use
  Company Number: JP-CHUGAI-2021002706AA

PATIENT
  Age: 74 Year
  Sex: Female
  Weight: 61.9 kg

DRUGS (10)
  1. TECENTRIQ [Suspect]
     Active Substance: ATEZOLIZUMAB
     Indication: Hepatocellular carcinoma
     Route: 041
     Dates: start: 20201215, end: 20210309
  2. AVASTIN [Suspect]
     Active Substance: BEVACIZUMAB
     Indication: Hepatocellular carcinoma
     Route: 041
     Dates: start: 20201215, end: 20210309
  3. ASPIRIN [Concomitant]
     Active Substance: ASPIRIN
     Dosage: UNK
     Route: 048
     Dates: end: 20210430
  4. LANSOPRAZOLE [Concomitant]
     Active Substance: LANSOPRAZOLE
     Route: 048
  5. ROSUVASTATIN CALCIUM [Concomitant]
     Active Substance: ROSUVASTATIN CALCIUM
     Route: 048
  6. NESINA [Concomitant]
     Active Substance: ALOGLIPTIN BENZOATE
     Route: 048
  7. ESAXERENONE [Concomitant]
     Active Substance: ESAXERENONE
     Route: 048
  8. URSODIOL [Concomitant]
     Active Substance: URSODIOL
     Route: 048
  9. INDAPAMIDE [Concomitant]
     Active Substance: INDAPAMIDE
     Route: 048
  10. AMLODIPINE BESYLATE\IRBESARTAN [Concomitant]
     Active Substance: AMLODIPINE BESYLATE\IRBESARTAN
     Route: 048

REACTIONS (18)
  - Aspartate aminotransferase increased [Fatal]
  - Alanine aminotransferase increased [Fatal]
  - Renal impairment [Fatal]
  - Hepatitis fulminant [Fatal]
  - Cellulitis [Unknown]
  - Hypoalbuminaemia [Unknown]
  - Disseminated intravascular coagulation [Unknown]
  - Hepatic cirrhosis [Unknown]
  - Stomatitis [Unknown]
  - Blood bilirubin increased [Fatal]
  - Immune-mediated hepatic disorder [Fatal]
  - Blood creatinine increased [Fatal]
  - Lower gastrointestinal haemorrhage [Unknown]
  - Shock [Unknown]
  - Acquired diaphragmatic eventration [Unknown]
  - Brain natriuretic peptide increased [Unknown]
  - Eating disorder [Unknown]
  - Blood sodium decreased [Unknown]

NARRATIVE: CASE EVENT DATE: 20210427
